FAERS Safety Report 8836447 (Version 1)
Quarter: 2012Q4

REPORT INFORMATION
  Report Type: 
  Country: US (occurrence: US)
  Receive Date: 20121011
  Receipt Date: 20121011
  Transmission Date: 20130627
  Serious: No
  Sender: FDA-Public Use
  Company Number: US-BAYER-2012-101616

PATIENT
  Age: 50 Year
  Sex: Female

DRUGS (1)
  1. AVELOX I.V. [Suspect]
     Indication: PNEUMONIA
     Route: 042

REACTIONS (13)
  - Restlessness [None]
  - Poor quality sleep [None]
  - Nausea [None]
  - Decreased appetite [None]
  - Mood altered [None]
  - Diarrhoea [None]
  - Pupillary disorder [None]
  - Hallucination, auditory [None]
  - Visual impairment [None]
  - Pollakiuria [None]
  - Throat tightness [None]
  - Dysphagia [None]
  - Nervousness [None]
